FAERS Safety Report 4808156-3 (Version None)
Quarter: 2005Q4

REPORT INFORMATION
  Report Type: 
  Country: None (occurrence: None)
  Receive Date: 20051021
  Receipt Date: 20051010
  Transmission Date: 20060501
  Serious: Yes (Hospitalization)
  Sender: FDA-Public Use
  Company Number: 6017772

PATIENT
  Age: 52 Year
  Sex: Male

DRUGS (2)
  1. DETENSIEL               (BISOPROLOL FUMERATE) [Suspect]
     Dosage: DOSAGE FORMS (DOSAGE FORMS) ORAL
     Route: 048
  2. COTAREG                 (HYDROCHLORIDE, VALSARTAN) [Suspect]
     Dosage: DOSAGE FORMS (DOSAGE FORMS) ORAL
     Route: 048

REACTIONS (3)
  - NEURODERMATITIS [None]
  - PRURITUS [None]
  - RASH PAPULAR [None]
